FAERS Safety Report 4900967-9 (Version None)
Quarter: 2006Q1

REPORT INFORMATION
  Report Type: 
  Country: None (occurrence: None)
  Receive Date: 20060203
  Receipt Date: 20051103
  Transmission Date: 20060701
  Serious: Yes (Other)
  Sender: FDA-Public Use
  Company Number: US-MERCK-0511USA00580

PATIENT
  Age: 91 Year
  Sex: Male

DRUGS (3)
  1. TRUSOPT [Suspect]
     Indication: GLAUCOMA
     Route: 047
     Dates: start: 19980101
  2. [THERAPY UNSPECIFIED] [Concomitant]
     Route: 047
  3. ALPHAGAN [Concomitant]
     Route: 065

REACTIONS (1)
  - BLINDNESS [None]
